FAERS Safety Report 16971211 (Version 4)
Quarter: 2019Q4

REPORT INFORMATION
  Report Type: Spontaneous
  Country: US (occurrence: US)
  Receive Date: 20191029
  Receipt Date: 20191218
  Transmission Date: 20200122
  Serious: No
  Sender: FDA-Public Use
  Company Number: US-LEXICON PHARMACEUTICALS, INC-19-1606-00964

PATIENT
  Sex: Female

DRUGS (2)
  1. SOMATULINE [Concomitant]
     Active Substance: LANREOTIDE ACETATE
  2. XERMELO [Suspect]
     Active Substance: TELOTRISTAT ETHYL
     Indication: CARCINOID SYNDROME
     Dates: start: 20190920

REACTIONS (11)
  - Headache [Recovered/Resolved]
  - Product dose omission [Unknown]
  - Panic attack [Not Recovered/Not Resolved]
  - Hepatic pain [Unknown]
  - Onychoclasis [Unknown]
  - Depression [Recovered/Resolved]
  - Constipation [Unknown]
  - Therapeutic product effect incomplete [Unknown]
  - Fall [Unknown]
  - Feeling hot [Unknown]
  - Urine odour abnormal [Unknown]

NARRATIVE: CASE EVENT DATE: 2019
